FAERS Safety Report 8342240-5 (Version None)
Quarter: 2012Q2

REPORT INFORMATION
  Report Type: 
  Country: None (occurrence: None)
  Receive Date: 20120507
  Receipt Date: 20120502
  Transmission Date: 20120825
  Serious: Yes (Other)
  Sender: FDA-Public Use
  Company Number: US-AMGEN-USASP2012021613

PATIENT
  Age: 64 Year
  Sex: Female
  Weight: 78.005 kg

DRUGS (5)
  1. PROLIA [Suspect]
     Indication: OSTEOPOROSIS POSTMENOPAUSAL
     Dosage: 60 MG, Q6MO
     Route: 058
     Dates: start: 20110214
  2. ALLEGRA [Concomitant]
     Dosage: 180 DF, QD
  3. ESTRADIOL [Concomitant]
     Dosage: 2 MG, QD
  4. PANTOPRAZOLE [Concomitant]
     Dosage: 40 DF, QD
  5. LIPITOR [Concomitant]
     Dosage: 20 DF, QD

REACTIONS (5)
  - THROAT LESION [None]
  - MOUTH ULCERATION [None]
  - OROPHARYNGEAL PAIN [None]
  - GINGIVAL ULCERATION [None]
  - LATEX ALLERGY [None]
